FAERS Safety Report 6357535-4 (Version None)
Quarter: 2009Q3

REPORT INFORMATION
  Report Type: 
  Country: None (occurrence: None)
  Receive Date: 20090916
  Receipt Date: 20090910
  Transmission Date: 20100115
  Serious: Yes (Death)
  Sender: FDA-Public Use
  Company Number: JP-ELI_LILLY_AND_COMPANY-JP200909001783

PATIENT
  Age: 72 Year
  Sex: Female

DRUGS (4)
  1. ALIMTA [Suspect]
     Indication: NON-SMALL CELL LUNG CANCER RECURRENT
     Dosage: 660 MG, OTHER
     Route: 042
     Dates: start: 20090811, end: 20090811
  2. CARBOPLATIN [Concomitant]
     Indication: NON-SMALL CELL LUNG CANCER RECURRENT
     Dosage: 520 MG, OTHER
     Route: 042
     Dates: start: 20090811, end: 20090811
  3. FOLIC ACID [Concomitant]
  4. VITAMIN B12 NOS [Concomitant]

REACTIONS (2)
  - CEREBRAL INFARCTION [None]
  - INTERSTITIAL LUNG DISEASE [None]
